FAERS Safety Report 21930662 (Version 1)
Quarter: 2023Q1

REPORT INFORMATION
  Report Type: Report from Study
  Country: US (occurrence: US)
  Receive Date: 20230131
  Receipt Date: 20230131
  Transmission Date: 20230418
  Serious: Yes (Other)
  Sender: FDA-Public Use
  Company Number: US-JNJFOC-20230129878

PATIENT
  Age: 71 Year
  Sex: Female

DRUGS (3)
  1. SPRAVATO [Suspect]
     Active Substance: ESKETAMINE
     Indication: Depression
     Dosage: 56 MG, 1 TOTAL DOSES
     Dates: start: 20221219, end: 20221219
  2. SPRAVATO [Suspect]
     Active Substance: ESKETAMINE
     Dosage: 84 MG, 2 TOTAL DOSES
     Dates: start: 20221227, end: 20221229
  3. SPRAVATO [Suspect]
     Active Substance: ESKETAMINE
     Dosage: 56 MG, 4 TOTAL DOSES
     Dates: start: 20230105, end: 20230119

REACTIONS (4)
  - Hallucination [Unknown]
  - Back pain [Unknown]
  - Panic attack [Unknown]
  - Fatigue [Unknown]

NARRATIVE: CASE EVENT DATE: 20221227
